FAERS Safety Report 13239074 (Version 1)
Quarter: 2017Q1

REPORT INFORMATION
  Report Type: Spontaneous
  Country: US (occurrence: US)
  Receive Date: 20170216
  Receipt Date: 20170216
  Transmission Date: 20170428
  Serious: Yes (Other)
  Sender: FDA-Public Use
  Company Number: None

PATIENT
  Age: 59 Year
  Sex: Female
  Weight: 74.91 kg

DRUGS (11)
  1. VRAYLAR [Suspect]
     Active Substance: CARIPRAZINE
     Indication: MAJOR DEPRESSION
     Route: 048
  2. HYDROCHLOROTHIAZIDE. [Concomitant]
     Active Substance: HYDROCHLOROTHIAZIDE
  3. LAMICTAL [Concomitant]
     Active Substance: LAMOTRIGINE
  4. NEBIVOLOL HCL (BYSTOLIC) [Concomitant]
  5. TRIAMCINOLONE ACETONIDE. [Concomitant]
     Active Substance: TRIAMCINOLONE ACETONIDE
  6. ZOLPIDEM TARTRATE. [Concomitant]
     Active Substance: ZOLPIDEM TARTRATE
  7. LIRAGLUTIDE (SAXENDA) [Concomitant]
  8. VRAYLAR [Suspect]
     Active Substance: CARIPRAZINE
     Indication: AFFECTIVE DISORDER
     Route: 048
  9. ARIPIPRAZOLE. [Concomitant]
     Active Substance: ARIPIPRAZOLE
  10. ALPRAZOLAM (ALPRAZOLAM ER) [Concomitant]
  11. LYRICA [Concomitant]
     Active Substance: PREGABALIN

REACTIONS (3)
  - Muscle twitching [None]
  - Dyskinesia [None]
  - Tongue disorder [None]

NARRATIVE: CASE EVENT DATE: 20170207
